FAERS Safety Report 7940054-9 (Version None)
Quarter: 2011Q4

REPORT INFORMATION
  Report Type: 
  Country: None (occurrence: None)
  Receive Date: 20111125
  Receipt Date: 20111114
  Transmission Date: 20120403
  Serious: Yes (Hospitalization)
  Sender: FDA-Public Use
  Company Number: DE-SANOFI-AVENTIS-2011SA076529

PATIENT
  Age: 51 Year
  Sex: Female
  Weight: 74 kg

DRUGS (5)
  1. TRASTUZUMAB [Suspect]
     Dosage: LOADING DOSE, TOTAL DOSE 600 MG, VIALS
     Route: 042
     Dates: start: 20100706, end: 20100726
  2. BEVACIZUMAB [Suspect]
     Route: 042
     Dates: start: 20100706, end: 20100729
  3. TRASTUZUMAB [Suspect]
     Dosage: MAINTAINANCE DOSE
     Route: 042
     Dates: start: 20100729
  4. DOCETAXEL [Suspect]
     Dosage: TOTAL DOSE: 190 MG, VIAL
     Route: 042
     Dates: start: 20100706, end: 20100726
  5. DOCETAXEL [Suspect]
     Route: 042
     Dates: start: 20100729

REACTIONS (1)
  - LARGE INTESTINAL ULCER [None]
